FAERS Safety Report 6096883-2 (Version None)
Quarter: 2009Q1

REPORT INFORMATION
  Report Type: 
  Country: None (occurrence: None)
  Receive Date: 20090223
  Receipt Date: 20080513
  Transmission Date: 20090719
  Serious: Yes (Hospitalization)
  Sender: FDA-Public Use
  Company Number: WAES 0805USA02764

PATIENT
  Age: 47 Year
  Sex: Male
  Weight: 105.6881 kg

DRUGS (10)
  1. ZOCOR [Suspect]
     Indication: DYSLIPIDAEMIA
     Dosage: 40 MG/DAILYPO
     Route: 048
     Dates: start: 20060401, end: 20070508
  2. TRICOR [Suspect]
     Indication: DYSLIPIDAEMIA
     Dosage: 160MG/ DAILY/PO 145 MG / DAILY/PO
     Route: 048
     Dates: start: 20040801, end: 20051001
  3. TRICOR [Suspect]
     Indication: DYSLIPIDAEMIA
     Dosage: 160MG/ DAILY/PO 145 MG / DAILY/PO
     Route: 048
     Dates: start: 20051001, end: 20070508
  4. NIACIN [Suspect]
     Indication: DYSLIPIDAEMIA
     Dosage: 500 MG/ DAILY/ PO
     Route: 048
     Dates: start: 20070328, end: 20070508
  5. COMBIVENT [Concomitant]
  6. PRINIVIL [Concomitant]
  7. RISPERDAL [Concomitant]
  8. SERETIDE [Concomitant]
  9. FLUOXETINE HYDROCHLORIDE [Concomitant]
  10. TIOTROPIUM BROMIDE [Concomitant]

REACTIONS (1)
  - RHABDOMYOLYSIS [None]
